FAERS Safety Report 9244584 (Version 1)
Quarter: 2013Q2

REPORT INFORMATION
  Report Type: Spontaneous
  Country: JP (occurrence: JP)
  Receive Date: 20130422
  Receipt Date: 20130422
  Transmission Date: 20140414
  Serious: Yes (Death)
  Sender: FDA-Public Use
  Company Number: JP-TEVA-399176ISR

PATIENT
  Age: 72 Year
  Sex: Male

DRUGS (2)
  1. CISPLATIN [Suspect]
     Indication: SMALL CELL LUNG CANCER
     Dosage: 60 MG/M2 ON DAY 1
     Route: 042
  2. CAMPTO [Suspect]
     Indication: SMALL CELL LUNG CANCER
     Dosage: 40 MG/M2 ON DAYS 1, 8 AND 15
     Route: 042

REACTIONS (1)
  - Radiation pneumonitis [Fatal]
